FAERS Safety Report 18197556 (Version 1)
Quarter: 2020Q3

REPORT INFORMATION
  Report Type: Spontaneous
  Country: US (occurrence: US)
  Receive Date: 20200826
  Receipt Date: 20200826
  Transmission Date: 20201103
  Serious: Yes (Hospitalization)
  Sender: FDA-Public Use
  Company Number: None

PATIENT
  Age: 24 Year
  Sex: Male
  Weight: 112 kg

DRUGS (5)
  1. CYTARABINE. [Suspect]
     Active Substance: CYTARABINE
     Dates: end: 20200218
  2. DEXAMETHASONE. [Suspect]
     Active Substance: DEXAMETHASONE
     Dates: end: 20200225
  3. VINCRISTINE SULFATE. [Suspect]
     Active Substance: VINCRISTINE SULFATE
     Dates: end: 20200219
  4. DAUNORUBICIN [Suspect]
     Active Substance: DAUNORUBICIN
     Dates: end: 20200219
  5. ONCASPAR [Suspect]
     Active Substance: PEGASPARGASE
     Dates: end: 20200222

REACTIONS (14)
  - Chest pain [None]
  - Metabolic acidosis [None]
  - Blood fibrinogen decreased [None]
  - Stress cardiomyopathy [None]
  - Electrocardiogram ST segment elevation [None]
  - Acute coronary syndrome [None]
  - Pain [None]
  - Ventricular hypokinesia [None]
  - Myocardial ischaemia [None]
  - Troponin T increased [None]
  - Blood lactic acid increased [None]
  - Soft tissue necrosis [None]
  - Pulmonary embolism [None]
  - Pulmonary infarction [None]

NARRATIVE: CASE EVENT DATE: 20200225
